FAERS Safety Report 5926995-2 (Version None)
Quarter: 2008Q4

REPORT INFORMATION
  Report Type: 
  Country: None (occurrence: None)
  Receive Date: 20081022
  Receipt Date: 20081017
  Transmission Date: 20090506
  Serious: Yes (Other)
  Sender: FDA-Public Use
  Company Number: US-ASTRAZENECA-2008UW05378

PATIENT
  Age: 77 Year
  Sex: Male
  Weight: 88.5 kg

DRUGS (10)
  1. SEROQUEL [Suspect]
     Indication: MOOD SWINGS
     Route: 048
     Dates: start: 19990101
  2. SEROQUEL [Suspect]
     Indication: DEMENTIA WITH LEWY BODIES
     Route: 048
     Dates: start: 19990101
  3. EXELON [Concomitant]
  4. ATIVAN [Concomitant]
  5. INSULIN [Concomitant]
  6. ASPIRIN [Concomitant]
  7. ISOSORBIDE [Concomitant]
  8. ATENOLOL [Concomitant]
  9. PLAVIX [Concomitant]
  10. PRAVASTATIN [Concomitant]

REACTIONS (4)
  - AMNESIA [None]
  - CHEST PAIN [None]
  - PROSTATE CANCER [None]
  - PULMONARY OEDEMA [None]
